FAERS Safety Report 11151022 (Version 3)
Quarter: 2015Q2

REPORT INFORMATION
  Report Type: Report from Study
  Country: CN (occurrence: CN)
  Receive Date: 20150601
  Receipt Date: 20150615
  Transmission Date: 20150821
  Serious: Yes (Death, Other)
  Sender: FDA-Public Use
  Company Number: CN-ASTELLAS-2015US018614

PATIENT
  Age: 64 Year
  Sex: Female

DRUGS (2)
  1. ERLOTINIB [Suspect]
     Active Substance: ERLOTINIB
     Indication: NON-SMALL CELL LUNG CANCER
     Route: 048
     Dates: start: 20140728
  2. ERLOTINIB [Suspect]
     Active Substance: ERLOTINIB
     Route: 048

REACTIONS (7)
  - Feeding disorder [Unknown]
  - Nasopharyngitis [Unknown]
  - Death [Fatal]
  - Nausea [Unknown]
  - Myocardial infarction [Unknown]
  - Vomiting [Unknown]
  - Cough [Recovering/Resolving]

NARRATIVE: CASE EVENT DATE: 201505
